FAERS Safety Report 6044911-2 (Version None)
Quarter: 2009Q1

REPORT INFORMATION
  Report Type: 
  Country: None (occurrence: None)
  Receive Date: 20090121
  Receipt Date: 20090116
  Transmission Date: 20090719
  Serious: Yes (Death)
  Sender: FDA-Public Use
  Company Number: US-JNJFOC-20090104065

PATIENT
  Age: 38 Year
  Sex: Male
  Weight: 127.01 kg

DRUGS (2)
  1. HALOPERIDOL [Suspect]
     Indication: BIPOLAR DISORDER
     Route: 065
  2. RISPERIDONE [Suspect]
     Indication: BIPOLAR DISORDER
     Route: 065

REACTIONS (1)
  - PULMONARY EMBOLISM [None]
